FAERS Safety Report 17957660 (Version 1)
Quarter: 2020Q2

REPORT INFORMATION
  Report Type: Spontaneous
  Country: DE (occurrence: DE)
  Receive Date: 20200629
  Receipt Date: 20200629
  Transmission Date: 20200714
  Serious: Yes (Hospitalization)
  Sender: FDA-Public Use
  Company Number: DE-TEVA-2020-DE-1792030

PATIENT
  Age: 73 Year
  Sex: Male

DRUGS (8)
  1. COTRIM FORTE 800MG/160MG [Concomitant]
     Dosage: 800 | 160 MG / 2 DAYS, 1-0-0-0
  2. ENOXAPARIN [Concomitant]
     Active Substance: ENOXAPARIN
     Dosage: 40 MILLIGRAM DAILY;  1-0-0-0
  3. ZOLEDRONIC ACID [Concomitant]
     Active Substance: ZOLEDRONIC ACID
     Dosage: NK MG / 1X MONTH, 1-0-0-0
  4. OXALIPLATIN. [Suspect]
     Active Substance: OXALIPLATIN
     Dosage: NK MG, ACCORDING TO THE SCHEME
     Route: 065
  5. ALLOPURINOL. [Concomitant]
     Active Substance: ALLOPURINOL
     Dosage: 150 MILLIGRAM DAILY; 1-0-0-0
  6. VIGANTOLETTEN 1000I.E. [Suspect]
     Active Substance: CHOLECALCIFEROL
     Dosage: 1000 IU (INTERNATIONAL UNIT) DAILY; 1-0-0-0
     Route: 065
  7. GEMCITABINE. [Suspect]
     Active Substance: GEMCITABINE
     Dosage: NK MG, ACCORDING TO THE SCHEME
     Route: 065
  8. RITUXIMAB. [Suspect]
     Active Substance: RITUXIMAB
     Dosage: NK MG, ACCORDING TO THE SCHEME
     Route: 065

REACTIONS (4)
  - General physical health deterioration [Unknown]
  - Productive cough [Unknown]
  - Cough [Unknown]
  - Product administration error [Unknown]
